FAERS Safety Report 19066095 (Version 1)
Quarter: 2021Q1

REPORT INFORMATION
  Report Type: Not Available
  Country: None (occurrence: None)
  Receive Date: 20210327
  Receipt Date: 20210327
  Transmission Date: 20210420
  Serious: No
  Sender: FDA-Public Use
  Company Number: US-AKORN-162695

PATIENT
  Age: 67 Year
  Sex: Male

DRUGS (1)
  1. TIMOLOL MALEATE. [Suspect]
     Active Substance: TIMOLOL MALEATE

REACTIONS (6)
  - Eye swelling [None]
  - Eyelid margin crusting [None]
  - Eyelid folliculitis [None]
  - Ocular hyperaemia [None]
  - Eye irritation [None]
  - Eye pain [None]

NARRATIVE: CASE EVENT DATE: 20210213
